FAERS Safety Report 10670992 (Version 1)
Quarter: 2014Q4

REPORT INFORMATION
  Report Type: Spontaneous
  Country: US (occurrence: US)
  Receive Date: 20141223
  Receipt Date: 20141223
  Transmission Date: 20150529
  Serious: No
  Sender: FDA-Public Use
  Company Number: US-TEVA-494825USA

PATIENT
  Sex: Male

DRUGS (1)
  1. LOVASTATIN. [Suspect]
     Active Substance: LOVASTATIN

REACTIONS (1)
  - Blood glucose increased [Unknown]
